FAERS Safety Report 7218359-9 (Version None)
Quarter: 2011Q1

REPORT INFORMATION
  Report Type: 
  Country: None (occurrence: None)
  Receive Date: 20110110
  Receipt Date: 20110105
  Transmission Date: 20110831
  Serious: Yes (Hospitalization)
  Sender: FDA-Public Use
  Company Number: PHHY2010US89978

PATIENT
  Sex: Female

DRUGS (12)
  1. URSODIOL [Concomitant]
  2. AZITHROMYCIN [Concomitant]
  3. CREON [Concomitant]
  4. ZOSYN [Concomitant]
     Route: 042
  5. IPRATROPIUM BROMIDE [Concomitant]
  6. TOBI [Suspect]
     Indication: CYSTIC FIBROSIS
     Dosage: 300 MG, BID
  7. PROTONIX [Concomitant]
  8. TOBRAMYCIN [Concomitant]
  9. ADVAIR [Concomitant]
  10. NPH INSULIN [Concomitant]
  11. MEGACE [Concomitant]
  12. MULTIVITAMIN [Concomitant]

REACTIONS (3)
  - HYPOXIA [None]
  - PULMONARY FUNCTION TEST DECREASED [None]
  - PRODUCTIVE COUGH [None]
